FAERS Safety Report 9200352 (Version 1)
Quarter: 2013Q1

REPORT INFORMATION
  Report Type: Report from Study
  Country: US (occurrence: US)
  Receive Date: 20130329
  Receipt Date: 20130329
  Transmission Date: 20140127
  Serious: Yes (Death, Hospitalization)
  Sender: FDA-Public Use
  Company Number: US-ABBOTT-13P-163-1068148-00

PATIENT
  Age: 77 None
  Sex: Male
  Weight: 118.04 kg

DRUGS (21)
  1. HUMIRA [Suspect]
     Indication: PSORIASIS
     Dates: start: 201109, end: 201208
  2. COUMADIN [Concomitant]
     Indication: THROMBOSIS
  3. COZAAR [Concomitant]
     Indication: HYPERTENSION
  4. AMBIEN [Concomitant]
     Indication: SLEEP DISORDER
  5. LASIX [Concomitant]
     Indication: FLUID RETENTION
  6. POTASSIUM CHLORIDE [Concomitant]
     Indication: ELECTROLYTE SUBSTITUTION THERAPY
  7. ZOCOR [Concomitant]
     Indication: HYPERLIPIDAEMIA
  8. HYDROCHLOROTHIAZIDE [Concomitant]
     Indication: HYPERTENSION
  9. TRAMADOL [Concomitant]
     Indication: RESTLESS LEGS SYNDROME
  10. REQUIP [Concomitant]
     Indication: PRODUCT USED FOR UNKNOWN INDICATION
  11. FLOMAX [Concomitant]
     Indication: PROSTATIC DISORDER
  12. ZOLOFT [Concomitant]
     Indication: DEPRESSION
  13. MAGNESIUM OXIDE [Concomitant]
     Indication: PRODUCT USED FOR UNKNOWN INDICATION
  14. IRON [Concomitant]
     Indication: MINERAL SUPPLEMENTATION
  15. STOOL SOFTENER [Concomitant]
     Indication: CONSTIPATION
  16. ASPIRIN [Concomitant]
     Indication: CARDIOVASCULAR EVENT PROPHYLAXIS
  17. CO Q 10 [Concomitant]
     Indication: VITAMIN SUPPLEMENTATION
  18. COLACE [Concomitant]
     Indication: CONSTIPATION
  19. VENTOLIN [Concomitant]
     Indication: CHRONIC OBSTRUCTIVE PULMONARY DISEASE
  20. FORADOL [Concomitant]
     Indication: CHRONIC OBSTRUCTIVE PULMONARY DISEASE
  21. SPIRIVA [Concomitant]
     Indication: CHRONIC OBSTRUCTIVE PULMONARY DISEASE

REACTIONS (9)
  - Sudden death [Fatal]
  - Chronic obstructive pulmonary disease [Fatal]
  - Dyspnoea exertional [Fatal]
  - Nasopharyngitis [Fatal]
  - Laceration [Not Recovered/Not Resolved]
  - Anxiety [Recovered/Resolved]
  - Chest pain [Recovered/Resolved]
  - Fall [Not Recovered/Not Resolved]
  - Wound infection [Recovered/Resolved]
